FAERS Safety Report 24572842 (Version 1)
Quarter: 2024Q4

REPORT INFORMATION
  Report Type: Spontaneous
  Country: US (occurrence: None)
  Receive Date: 20241101
  Receipt Date: 20241101
  Transmission Date: 20250115
  Serious: Yes (Hospitalization, Disabling)
  Sender: Public
  Company Number: None

PATIENT
  Age: 27 Year
  Sex: Female
  Weight: 67.5 kg

DRUGS (1)
  1. KADCYLA [Suspect]
     Active Substance: ADO-TRASTUZUMAB EMTANSINE
     Indication: Breast cancer
     Dates: start: 20241022, end: 20241022

REACTIONS (6)
  - Headache [None]
  - Pyrexia [None]
  - Fatigue [None]
  - Bedridden [None]
  - Decreased appetite [None]
  - Chills [None]

NARRATIVE: CASE EVENT DATE: 20241022
